FAERS Safety Report 10175790 (Version 1)
Quarter: 2014Q2

REPORT INFORMATION
  Report Type: Spontaneous
  Country: US (occurrence: None)
  Receive Date: 20140416
  Receipt Date: 20140416
  Transmission Date: 20141212
  Serious: Yes (Other)
  Sender: FDA-Public Use
  Company Number: 163-POMAL-14010996

PATIENT
  Age: 83 Year
  Sex: Male

DRUGS (1)
  1. POMALYST (POMALIDOMIDE) [Suspect]
     Indication: PLASMA CELL MYELOMA
     Route: 048
     Dates: start: 20131227, end: 201401

REACTIONS (9)
  - C-reactive protein increased [None]
  - Gait disturbance [None]
  - Weight decreased [None]
  - Asthenia [None]
  - Pyrexia [None]
  - Cold sweat [None]
  - Malaise [None]
  - Decreased appetite [None]
  - Fatigue [None]
